FAERS Safety Report 4731383-0 (Version None)
Quarter: 2005Q3

REPORT INFORMATION
  Report Type: 
  Country: None (occurrence: None)
  Receive Date: 20050802
  Receipt Date: 20050526
  Transmission Date: 20060218
  Serious: Yes (Death)
  Sender: FDA-Public Use
  Company Number: PHBS2005IT07710

PATIENT
  Age: 74 Year
  Sex: Male

DRUGS (1)
  1. EXELON [Suspect]
     Indication: DEMENTIA ALZHEIMER'S TYPE
     Dosage: 3 MG/D
     Route: 048
     Dates: start: 20050304, end: 20050320

REACTIONS (3)
  - ECZEMA [None]
  - PNEUMONIA [None]
  - PRURITUS [None]
